FAERS Safety Report 26154875 (Version 1)
Quarter: 2025Q4

REPORT INFORMATION
  Report Type: Report from Study
  Country: US (occurrence: US)
  Receive Date: 20251215
  Receipt Date: 20251215
  Transmission Date: 20260118
  Serious: Yes (Hospitalization, Other)
  Sender: ABBVIE
  Company Number: US-ABBVIE-6468890

PATIENT
  Age: 69 Year
  Sex: Male

DRUGS (1)
  1. RINVOQ [Suspect]
     Active Substance: UPADACITINIB
     Indication: Rheumatoid arthritis
     Dosage: 15 MILLIGRAM
     Route: 048
     Dates: start: 202501

REACTIONS (7)
  - Sinus congestion [Unknown]
  - Hepatic enzyme increased [Not Recovered/Not Resolved]
  - Eye infection [Unknown]
  - Sinusitis [Unknown]
  - Sinus disorder [Unknown]
  - Headache [Recovering/Resolving]
  - Hypersensitivity [Unknown]

NARRATIVE: CASE EVENT DATE: 20250101
